FAERS Safety Report 8138444-7 (Version None)
Quarter: 2012Q1

REPORT INFORMATION
  Report Type: 
  Country: None (occurrence: None)
  Receive Date: 20120215
  Receipt Date: 20120203
  Transmission Date: 20120608
  Serious: Yes (Other)
  Sender: FDA-Public Use
  Company Number: GB-ROCHE-1036542

PATIENT
  Age: 72 Year
  Sex: Male

DRUGS (10)
  1. BRUFEN RETARD [Concomitant]
  2. PARACETAMOL [Concomitant]
  3. BENDROFLUMETHIAZIDE [Concomitant]
  4. RITUXIMAB [Suspect]
     Indication: PRODUCT USED FOR UNKNOWN INDICATION
     Dates: start: 20110721
  5. RAMIPRIL [Concomitant]
  6. SIMVASTATIN [Concomitant]
  7. LANSOPRAZOLE [Concomitant]
  8. HYDROXYCHLOROQUINE SULFATE [Concomitant]
  9. METHOTREXATE [Suspect]
     Indication: PRODUCT USED FOR UNKNOWN INDICATION
     Route: 048
  10. FOLIC ACID [Concomitant]

REACTIONS (1)
  - SQUAMOUS CELL CARCINOMA [None]
